FAERS Safety Report 5385165-X (Version None)
Quarter: 2007Q3

REPORT INFORMATION
  Report Type: 
  Country: None (occurrence: None)
  Receive Date: 20070712
  Receipt Date: 20070629
  Transmission Date: 20080115
  Serious: No
  Sender: FDA-Public Use
  Company Number: DE-AVENTIS-200711759DE

PATIENT
  Sex: Male

DRUGS (1)
  1. ARAVA [Suspect]
     Route: 048
     Dates: start: 20020101

REACTIONS (1)
  - TRANSMISSION OF DRUG VIA SEMEN [None]
